FAERS Safety Report 22062401 (Version 1)
Quarter: 2023Q1

REPORT INFORMATION
  Report Type: Spontaneous
  Country: US (occurrence: None)
  Receive Date: 20230305
  Receipt Date: 20230305
  Transmission Date: 20230417
  Serious: No
  Sender: FDA-Public Use
  Company Number: 2023A037269

PATIENT
  Sex: Male
  Weight: 68 kg

DRUGS (1)
  1. BRILINTA [Suspect]
     Active Substance: TICAGRELOR
     Route: 048

REACTIONS (4)
  - Increased tendency to bruise [Unknown]
  - Mouth haemorrhage [Unknown]
  - Contusion [Unknown]
  - Product storage error [Unknown]
